FAERS Safety Report 13232386 (Version 1)
Quarter: 2017Q1

REPORT INFORMATION
  Report Type: Spontaneous
  Country: US (occurrence: US)
  Receive Date: 20170214
  Receipt Date: 20170214
  Transmission Date: 20170428
  Serious: Yes (Hospitalization)
  Sender: FDA-Public Use
  Company Number: US-CELGENEUS-USA-2017021407

PATIENT
  Age: 72 Year
  Sex: Male

DRUGS (2)
  1. THALOMID [Suspect]
     Active Substance: THALIDOMIDE
     Indication: REFRACTORY ANAEMIA WITH AN EXCESS OF BLASTS
     Dosage: 50 MILLIGRAM
     Route: 048
     Dates: start: 201610, end: 20170124
  2. THALOMID [Suspect]
     Active Substance: THALIDOMIDE
     Indication: IRON METABOLISM DISORDER
     Dosage: 100 MILLIGRAM
     Route: 048
     Dates: start: 20160817

REACTIONS (1)
  - Appendicitis perforated [Not Recovered/Not Resolved]

NARRATIVE: CASE EVENT DATE: 20170124
